FAERS Safety Report 4387705-6 (Version None)
Quarter: 2004Q2

REPORT INFORMATION
  Report Type: 
  Country: None (occurrence: None)
  Receive Date: 20040630
  Receipt Date: 20040621
  Transmission Date: 20050107
  Serious: Yes (Disabling)
  Sender: FDA-Public Use
  Company Number: US-MERCK-0406USA02044

PATIENT
  Age: 53 Year
  Sex: Female

DRUGS (4)
  1. CHLORDIAZEPOXIDE [Concomitant]
     Route: 065
  2. VASOTEC [Concomitant]
     Route: 048
  3. ZETIA [Suspect]
     Indication: BLOOD CHOLESTEROL INCREASED
     Route: 048
     Dates: start: 20031201, end: 20040101
  4. TRAZODONE HYDROCHLORIDE [Concomitant]
     Route: 065

REACTIONS (4)
  - ABDOMINAL PAIN UPPER [None]
  - CHILLS [None]
  - GALLBLADDER PAIN [None]
  - PYREXIA [None]
